FAERS Safety Report 26208289 (Version 1)
Quarter: 2025Q4

REPORT INFORMATION
  Report Type: Spontaneous
  Country: CN (occurrence: CN)
  Receive Date: 20251229
  Receipt Date: 20251229
  Transmission Date: 20260118
  Serious: Yes (Life-Threatening, Other)
  Sender: BAYER HEALTHCARE PHARMACEUTICALS INC.
  Company Number: CN-BAYER-2025A168844

PATIENT
  Age: 68 Year
  Sex: Male
  Weight: 70 kg

DRUGS (1)
  1. ULTRAVIST [Suspect]
     Active Substance: IOPROMIDE
     Indication: Angiogram
     Dosage: 60 ML, ONCE, HIGH-PRESSURE INJECTION AT 5ML/S
     Dates: start: 20231120, end: 20231120

REACTIONS (3)
  - Blood pressure increased [None]
  - Cough [Recovering/Resolving]
  - Dysphonia [None]

NARRATIVE: CASE EVENT DATE: 20231120
